FAERS Safety Report 21286007 (Version 1)
Quarter: 2022Q3

REPORT INFORMATION
  Report Type: Spontaneous
  Country: US (occurrence: None)
  Receive Date: 20220901
  Receipt Date: 20220901
  Transmission Date: 20221027
  Serious: Yes (Hospitalization)
  Sender: FDA-Public Use
  Company Number: None

PATIENT
  Sex: Female

DRUGS (2)
  1. ENBREL [Suspect]
     Active Substance: ETANERCEPT
     Indication: Rheumatoid arthritis
     Route: 058
     Dates: start: 20210323
  2. PLAQUENIL [Concomitant]

REACTIONS (5)
  - Cholelithiasis [None]
  - Rheumatoid arthritis [None]
  - Musculoskeletal stiffness [None]
  - COVID-19 [None]
  - Drug ineffective [None]
